FAERS Safety Report 16400148 (Version 1)
Quarter: 2019Q2

REPORT INFORMATION
  Report Type: Spontaneous
  Country: US (occurrence: US)
  Receive Date: 20190606
  Receipt Date: 20190606
  Transmission Date: 20190711
  Serious: No
  Sender: FDA-Public Use
  Company Number: US-ALLERGAN-1828482US

PATIENT
  Sex: Male

DRUGS (3)
  1. KYBELLA [Suspect]
     Active Substance: DEOXYCHOLIC ACID
     Dosage: 4 SYRINGES, SINGLE
     Route: 058
     Dates: start: 201711, end: 201711
  2. KYBELLA [Suspect]
     Active Substance: DEOXYCHOLIC ACID
     Dosage: UNK, SINGLE
     Route: 058
  3. KYBELLA [Suspect]
     Active Substance: DEOXYCHOLIC ACID
     Indication: CUTANEOUS SYMPTOM
     Dosage: 4 SYRINGES, SINGLE
     Route: 058
     Dates: start: 201706, end: 201706

REACTIONS (3)
  - Drug ineffective for unapproved indication [Unknown]
  - Off label use [Unknown]
  - Skin laxity [Not Recovered/Not Resolved]
